FAERS Safety Report 8553541-X (Version None)
Quarter: 2012Q2

REPORT INFORMATION
  Report Type: 
  Country: None (occurrence: None)
  Receive Date: 20120417
  Receipt Date: 20110913
  Transmission Date: 20120825
  Serious: Yes (Hospitalization)
  Sender: FDA-Public Use
  Company Number: 11-001020

PATIENT
  Age: 17 Year
  Sex: Female
  Weight: 72.6 kg

DRUGS (1)
  1. LOESTRIN 24 FE [Suspect]
     Indication: MENSTRUATION IRREGULAR
     Dosage: 20/1000UG, QD, ORAL
     Route: 048
     Dates: start: 20110101, end: 20110601

REACTIONS (1)
  - PULMONARY EMBOLISM [None]
